FAERS Safety Report 9076973 (Version 1)
Quarter: 2013Q1

REPORT INFORMATION
  Report Type: Report from Study
  Country: US (occurrence: US)
  Receive Date: 20130129
  Receipt Date: 20130129
  Transmission Date: 20140127
  Serious: No
  Sender: FDA-Public Use
  Company Number: US-ABBOTT-12P-163-0928114-00

PATIENT
  Age: 69 Year
  Sex: Female

DRUGS (16)
  1. HUMIRA 40 MG/0.8 ML PEN [Suspect]
     Indication: CROHN^S DISEASE
     Dates: start: 20120307
  2. HUMIRA 40 MG/0.8 ML PEN [Suspect]
     Dosage: 80 MG
     Dates: start: 20120321
  3. NEURONTIN [Suspect]
     Indication: ARTHRITIS
     Dosage: 200MG EVERY MORNING AND 400MG EVERY EVENING
  4. NEURONTIN [Suspect]
     Dosage: INCREASED
  5. PENTASA [Concomitant]
     Indication: CROHN^S DISEASE
     Dosage: 500MG 8 TABS DAILY
  6. NEXIUM [Concomitant]
     Indication: ILL-DEFINED DISORDER
  7. PRIMIDONE [Concomitant]
     Indication: CONVULSION
     Dosage: 50MG 2 TABS 3 TIMES DAILY
  8. PRIMIDONE [Concomitant]
     Indication: MIGRAINE
  9. INDERAL [Concomitant]
     Indication: CONVULSION
     Dosage: 60MG EVERY MORNING
  10. INDERAL [Concomitant]
     Indication: MIGRAINE
  11. NORPACE CR [Concomitant]
     Indication: CARDIAC DISORDER
     Dosage: 50MG TWICE DAILY
  12. PHENERGAN [Concomitant]
     Indication: NAUSEA
     Dosage: 25MG AS NEEDED
  13. LORTAB [Concomitant]
     Indication: PAIN
     Dosage: 7.5MG AS NEEDED
  14. TYLENOL [Concomitant]
     Indication: PAIN
     Dosage: 325MG AS NEEDED
  15. LOMOTIL [Concomitant]
     Indication: DIARRHOEA
  16. B12 [Concomitant]
     Indication: PRODUCT USED FOR UNKNOWN INDICATION
     Dosage: MONTHLY

REACTIONS (1)
  - Depression [Not Recovered/Not Resolved]
